FAERS Safety Report 20497044 (Version 3)
Quarter: 2022Q2

REPORT INFORMATION
  Report Type: Spontaneous
  Country: FR (occurrence: FR)
  Receive Date: 20220221
  Receipt Date: 20220601
  Transmission Date: 20220720
  Serious: Yes (Other)
  Sender: FDA-Public Use
  Company Number: FR-ANIPHARMA-2022-FR-000033

PATIENT
  Age: 76 Year
  Sex: Female

DRUGS (7)
  1. ATACAND [Suspect]
     Active Substance: CANDESARTAN CILEXETIL
     Indication: Hypertension
     Route: 048
  2. SYMBICORT [Suspect]
     Active Substance: BUDESONIDE\FORMOTEROL FUMARATE DIHYDRATE
     Route: 055
  3. CRESTOR [Suspect]
     Active Substance: ROSUVASTATIN CALCIUM
     Route: 048
  4. LATANOPROST [Suspect]
     Active Substance: LATANOPROST
     Dosage: IN EVENING IN BOTH EYES, 1 GTT DAILY
  5. LEVOTHYROXINE [Suspect]
     Active Substance: LEVOTHYROXINE
     Route: 065
  6. PFIZER-BIONTECH COVID-19 VACCINE [Suspect]
     Active Substance: TOZINAMERAN
     Dosage: FIRST DOSE/SECOND DOSE
     Dates: start: 202107
  7. CHOLECALCIFEROL [Suspect]
     Active Substance: CHOLECALCIFEROL
     Route: 065

REACTIONS (14)
  - Swelling of eyelid [Unknown]
  - Eye swelling [Recovering/Resolving]
  - Dark circles under eyes [Recovering/Resolving]
  - Cataract [Not Recovered/Not Resolved]
  - Weight decreased [Unknown]
  - Dizziness [Unknown]
  - Cough [Unknown]
  - Transaminases increased [Recovered/Resolved]
  - Vision blurred [Not Recovered/Not Resolved]
  - Asthmatic crisis [Recovered/Resolved]
  - Lacrimation increased [Recovering/Resolving]
  - Dyspnoea [Not Recovered/Not Resolved]
  - Wrong technique in product usage process [Unknown]
  - Muscle spasms [Recovered/Resolved]

NARRATIVE: CASE EVENT DATE: 20210801
